FAERS Safety Report 9240763 (Version 1)
Quarter: 2013Q1

REPORT INFORMATION
  Report Type: Spontaneous
  Country: US (occurrence: None)
  Receive Date: 20121120
  Receipt Date: 20121120
  Transmission Date: 20140127
  Serious: No
  Sender: FDA-Public Use
  Company Number: 1000037631

PATIENT
  Age: 66 Year
  Sex: Male

DRUGS (3)
  1. VIIBRYD [Suspect]
     Indication: ANXIETY
     Route: 048
     Dates: start: 20120722, end: 20120728
  2. VIIBRYD [Suspect]
     Indication: DEPRESSION
     Route: 048
     Dates: start: 20120722, end: 20120728
  3. HIGH BLOOD PRESSURE MEDICATION NOS(HIGH BLOOD PRESSURE MEDICATION NOS)(HIGH BLOOD PRESSURE MEDICATION NOS) [Concomitant]

REACTIONS (12)
  - Drug ineffective [None]
  - Headache [None]
  - Confusional state [None]
  - Amnesia [None]
  - Nausea [None]
  - Feeling abnormal [None]
  - Agitation [None]
  - Irritability [None]
  - Restlessness [None]
  - Muscle twitching [None]
  - Heart rate increased [None]
  - Asthenia [None]
